FAERS Safety Report 4314198-7 (Version None)
Quarter: 2004Q1

REPORT INFORMATION
  Report Type: 
  Country: None (occurrence: None)
  Receive Date: 20040308
  Receipt Date: 20040308
  Transmission Date: 20041129
  Serious: Yes (Hospitalization)
  Sender: FDA-Public Use
  Company Number: None

PATIENT
  Age: 72 Year
  Sex: Male
  Weight: 89 kg

DRUGS (12)
  1. WARFARIN SODIUM [Suspect]
     Indication: ATRIAL FIBRILLATION
     Dosage: 7.5MG DAILY ORAL
     Route: 048
  2. WARFARIN SODIUM [Suspect]
     Indication: DEEP VEIN THROMBOSIS
     Dosage: 7.5MG DAILY ORAL
     Route: 048
  3. DIVALPROEX SODIUM [Concomitant]
  4. INSULIN [Concomitant]
  5. PREDNISONE [Concomitant]
  6. QUETIAPINE [Concomitant]
  7. TRAZODONE HCL [Concomitant]
  8. RABEPRAZOLE SODIUM [Concomitant]
  9. SERTRALINE HCL [Concomitant]
  10. MAGNESIUM CITRATE [Concomitant]
  11. HYDROXYCHLOROQUINE [Concomitant]
  12. HYDROCORTICONE SUPP [Concomitant]

REACTIONS (7)
  - CONSTIPATION [None]
  - DIZZINESS [None]
  - HAEMORRHOIDAL HAEMORRHAGE [None]
  - HYPOTENSION [None]
  - PROCTALGIA [None]
  - RECTAL HAEMORRHAGE [None]
  - ULCER [None]
